FAERS Safety Report 5041924-4 (Version None)
Quarter: 2006Q2

REPORT INFORMATION
  Report Type: 
  Country: None (occurrence: None)
  Receive Date: 20060630
  Receipt Date: 20060615
  Transmission Date: 20061013
  Serious: Yes (Life-Threatening, Hospitalization)
  Sender: FDA-Public Use
  Company Number: 200606IM000357

PATIENT
  Age: 41 Year
  Sex: Female

DRUGS (1)
  1. ACTIMMUNE [Suspect]
     Indication: RHEUMATOID ARTHRITIS
     Dosage: 100 UG, TIW, SUBCUTANEOUS
     Route: 058

REACTIONS (21)
  - ANAEMIA [None]
  - BLOOD LACTATE DEHYDROGENASE INCREASED [None]
  - BLOOD POTASSIUM DECREASED [None]
  - CARDIAC FAILURE [None]
  - CARDIAC MURMUR [None]
  - CARDIOMEGALY [None]
  - CONDITION AGGRAVATED [None]
  - DECREASED APPETITE [None]
  - ECHOCARDIOGRAM ABNORMAL [None]
  - FOCAL GLOMERULOSCLEROSIS [None]
  - GLOMERULONEPHRITIS PROLIFERATIVE [None]
  - HAEMOPTYSIS [None]
  - LEUKOPENIA [None]
  - LUNG INFILTRATION [None]
  - LYMPHADENOPATHY [None]
  - PLEURAL EFFUSION [None]
  - SYSTEMIC LUPUS ERYTHEMATOSUS [None]
  - TACHYCARDIA [None]
  - TACHYPNOEA [None]
  - THERAPY NON-RESPONDER [None]
  - WEIGHT DECREASED [None]
